FAERS Safety Report 4855264-7 (Version None)
Quarter: 2005Q4

REPORT INFORMATION
  Report Type: 
  Country: None (occurrence: None)
  Receive Date: 20051125
  Receipt Date: 20050727
  Transmission Date: 20060501
  Serious: Yes (Disabling)
  Sender: FDA-Public Use
  Company Number: US-JNJFOC-20050800106

PATIENT
  Age: 52 Year
  Sex: Female
  Weight: 99.7913 kg

DRUGS (1)
  1. LEVAQUIN [Suspect]
     Indication: PSEUDOMONAS INFECTION
     Dosage: 500 MG, 2 IN 1 DAY, ORAL
     Route: 048
     Dates: start: 20050401, end: 20050501

REACTIONS (3)
  - FALL [None]
  - INSOMNIA [None]
  - NEUROPATHY PERIPHERAL [None]
